FAERS Safety Report 25567362 (Version 1)
Quarter: 2025Q3

REPORT INFORMATION
  Report Type: Spontaneous
  Country: EU (occurrence: EU)
  Receive Date: 20250716
  Receipt Date: 20250716
  Transmission Date: 20251021
  Serious: Yes (Life-Threatening)
  Sender: PURDUE
  Company Number: EU-PURDUE-USA-2025-0318928

PATIENT
  Age: 41 Year
  Sex: Female
  Weight: 74 kg

DRUGS (7)
  1. OXYCODONE HYDROCHLORIDE [Suspect]
     Active Substance: OXYCODONE HYDROCHLORIDE
     Indication: Pain
     Dosage: 10 MILLIGRAM, Q4H
     Route: 048
     Dates: end: 20250514
  2. IFOSFAMIDE [Suspect]
     Active Substance: IFOSFAMIDE
     Indication: Spindle cell sarcoma
     Dosage: 5360 MILLIGRAM, DAILY (2E CURE)
     Route: 042
     Dates: start: 20250512, end: 20250513
  3. MESNA [Suspect]
     Active Substance: MESNA
     Indication: Spindle cell sarcoma
     Dosage: 6400 MILLIGRAM, DAILY (2E CURE)
     Route: 042
     Dates: start: 20250512, end: 20250513
  4. DOXORUBICIN [Suspect]
     Active Substance: DOXORUBICIN
     Indication: Spindle cell sarcoma
     Route: 042
     Dates: start: 20250512, end: 20250512
  5. GABAPENTIN [Suspect]
     Active Substance: GABAPENTIN
     Indication: Pain
     Dosage: 300 MILLIGRAM, Q8H
     Route: 048
     Dates: end: 20250514
  6. METOCLOPRAMIDE [Suspect]
     Active Substance: METOCLOPRAMIDE
     Indication: Nausea
     Dosage: 1 DOSAGE FORM, DAILY
     Route: 042
     Dates: end: 20250514
  7. OXYCODONE [Suspect]
     Active Substance: OXYCODONE
     Indication: Pain
     Dosage: 40 MILLIGRAM, Q12H
     Route: 048
     Dates: end: 20250514

REACTIONS (1)
  - Toxic encephalopathy [Recovered/Resolved]

NARRATIVE: CASE EVENT DATE: 20250514
